FAERS Safety Report 7644905-7 (Version None)
Quarter: 2011Q3

REPORT INFORMATION
  Report Type: 
  Country: None (occurrence: None)
  Receive Date: 20110729
  Receipt Date: 20110727
  Transmission Date: 20111222
  Serious: Yes (Other)
  Sender: FDA-Public Use
  Company Number: US-SANOFI-AVENTIS-2011SA048177

PATIENT
  Age: 61 Year
  Sex: Male

DRUGS (2)
  1. MULTAQ [Suspect]
     Route: 048
     Dates: start: 20110601
  2. METOPROLOL TARTRATE [Suspect]
     Route: 065
     Dates: end: 20110701

REACTIONS (3)
  - OFF LABEL USE [None]
  - ATRIAL FIBRILLATION [None]
  - BRADYCARDIA [None]
